FAERS Safety Report 6120648-6 (Version None)
Quarter: 2009Q1

REPORT INFORMATION
  Report Type: 
  Country: None (occurrence: None)
  Receive Date: 20090312
  Receipt Date: 20090312
  Transmission Date: 20090719
  Serious: Yes (Hospitalization)
  Sender: FDA-Public Use
  Company Number: None

PATIENT
  Age: 47 Year
  Sex: Male
  Weight: 102.0593 kg

DRUGS (1)
  1. ROCEPHIN [Suspect]
     Dosage: 1MG ONCE IM
     Route: 030

REACTIONS (6)
  - DEPRESSED LEVEL OF CONSCIOUSNESS [None]
  - DIZZINESS [None]
  - DYSPHAGIA [None]
  - HEADACHE [None]
  - NAUSEA [None]
  - VOMITING [None]
